FAERS Safety Report 17112551 (Version 1)
Quarter: 2019Q4

REPORT INFORMATION
  Report Type: Spontaneous
  Country: PL (occurrence: PL)
  Receive Date: 20191204
  Receipt Date: 20191204
  Transmission Date: 20200122
  Serious: Yes (Hospitalization)
  Sender: FDA-Public Use
  Company Number: PL-MYLANLABS-2019M1118329

PATIENT
  Age: 41 Year
  Sex: Male

DRUGS (6)
  1. XEPLION [Suspect]
     Active Substance: PALIPERIDONE PALMITATE
     Indication: PRODUCT USED FOR UNKNOWN INDICATION
     Dosage: 100 MILLIGRAM
     Route: 030
  2. BIPERIDENI LACTAS [Concomitant]
     Dosage: UNK
     Route: 065
  3. OLANZAPINE. [Suspect]
     Active Substance: OLANZAPINE
     Indication: PRODUCT USED FOR UNKNOWN INDICATION
     Dosage: 10 MILLIGRAM
     Route: 065
  4. OMEPRAZOLE. [Concomitant]
     Active Substance: OMEPRAZOLE
     Dosage: UNK
     Route: 065
  5. HYDROXYZINE [Concomitant]
     Active Substance: HYDROXYZINE HYDROCHLORIDE
     Dosage: UNK
     Route: 065
  6. CLOZAPINE. [Concomitant]
     Active Substance: CLOZAPINE
     Dosage: UNK
     Route: 065

REACTIONS (4)
  - Blood creatine phosphokinase increased [Unknown]
  - Salivary hypersecretion [Unknown]
  - Muscle rigidity [Unknown]
  - Pyrexia [Unknown]
